FAERS Safety Report 25080812 (Version 2)
Quarter: 2025Q2

REPORT INFORMATION
  Report Type: Spontaneous
  Country: PT (occurrence: PT)
  Receive Date: 20250315
  Receipt Date: 20250612
  Transmission Date: 20250717
  Serious: Yes (Other)
  Sender: JOHNSON AND JOHNSON
  Company Number: PT-JNJFOC-20250319350

PATIENT
  Age: 69 Year
  Sex: Male

DRUGS (1)
  1. RYBREVANT [Suspect]
     Active Substance: AMIVANTAMAB-VMJW
     Indication: Lung neoplasm malignant
     Route: 042

REACTIONS (6)
  - Anal ulcer [Unknown]
  - Mouth ulceration [Recovering/Resolving]
  - Oedema peripheral [Not Recovered/Not Resolved]
  - Paronychia [Unknown]
  - Impaired healing [Not Recovered/Not Resolved]
  - Fall [Unknown]
